FAERS Safety Report 17009131 (Version 4)
Quarter: 2019Q4

REPORT INFORMATION
  Report Type: Report from Study
  Country: IN (occurrence: IN)
  Receive Date: 20191108
  Receipt Date: 20191203
  Transmission Date: 20200122
  Serious: Yes (Hospitalization)
  Sender: FDA-Public Use
  Company Number: IN-ROCHE-2458296

PATIENT
  Age: 65 Year
  Sex: Male
  Weight: 64 kg

DRUGS (9)
  1. RITUXIMAB. [Suspect]
     Active Substance: RITUXIMAB
     Indication: MICROSCOPIC POLYANGIITIS
  2. RITUXIMAB. [Suspect]
     Active Substance: RITUXIMAB
     Indication: GRANULOMATOSIS WITH POLYANGIITIS
     Dosage: DATE OF MOST RECENT DOSE OF RITUXIMAB (645 MG) AT 10:30: 09/OCT/2019?DOSAGE FORM AND STRENGTH: VIAL
     Route: 041
     Dates: start: 20190917, end: 20191009
  3. WYSOLONE [Concomitant]
     Active Substance: PREDNISOLONE
     Dosage: 20 MG AND 10 MG
     Route: 065
     Dates: start: 20191028
  4. COTRIMOXAZOLE [Concomitant]
     Active Substance: SULFAMETHOXAZOLE\TRIMETHOPRIM
     Route: 065
     Dates: start: 20191028
  5. FOLINIC ACID [Concomitant]
     Active Substance: LEUCOVORIN
     Route: 065
     Dates: start: 20191028
  6. LEVOFLOX [Concomitant]
     Active Substance: LEVOFLOXACIN
     Route: 065
     Dates: start: 20191028
  7. RANTAC [Concomitant]
     Active Substance: RANITIDINE HYDROCHLORIDE
     Route: 065
     Dates: start: 20191028
  8. DOLO [PARACETAMOL] [Concomitant]
  9. HYDROXYCHLOROQUINE [Concomitant]
     Active Substance: HYDROXYCHLOROQUINE

REACTIONS (5)
  - Pyrexia [Recovered/Resolved]
  - Viral upper respiratory tract infection [Recovered/Resolved]
  - Mouth ulceration [Recovering/Resolving]
  - Thrombocytopenia [Recovering/Resolving]
  - Dengue fever [Recovering/Resolving]

NARRATIVE: CASE EVENT DATE: 20191025
